FAERS Safety Report 10645453 (Version 2)
Quarter: 2015Q1

REPORT INFORMATION
  Report Type: Spontaneous
  Country: US (occurrence: None)
  Receive Date: 20141209
  Receipt Date: 20150102
  Transmission Date: 20150720
  Serious: Yes (Other)
  Sender: FDA-Public Use
  Company Number: 2014BOT00056

PATIENT
  Age: 74 Year
  Sex: Female
  Weight: 74.8 kg

DRUGS (11)
  1. PREDNISONE. [Concomitant]
     Active Substance: PREDNISONE
  2. SEPTRA [Concomitant]
     Active Substance: SULFAMETHOXAZOLE\TRIMETHOPRIM
  3. BYSTOLIC [Concomitant]
     Active Substance: NEBIVOLOL HYDROCHLORIDE
  4. HYDROCHLOROTHIAZIDE. [Concomitant]
     Active Substance: HYDROCHLOROTHIAZIDE
  5. LEVOTHYROXINE [Concomitant]
     Active Substance: LEVOTHYROXINE
  6. RANITIDINE [Concomitant]
     Active Substance: RANITIDINE\RANITIDINE HYDROCHLORIDE
  7. HOMEOPATHIC SCIATICA (ARNICA MONTANA, HYPERICUM PERFORATUM, GNAPHALIUM DIOTCUMN, KALI IDOATUM, MAGNESIA PHOSPHORICA, RHUS TOXICODENDRON) TABLET [Suspect]
     Active Substance: HOMEOPATHICS
     Dosage: 1 TABLET
     Route: 048
     Dates: start: 201410, end: 2014
  8. INDOMETHACIN. [Concomitant]
     Active Substance: INDOMETHACIN
  9. VITAMIN D3 [Concomitant]
     Active Substance: CHOLECALCIFEROL
  10. CYCLOSPORINE. [Concomitant]
     Active Substance: CYCLOSPORINE
  11. VITAMIN B12 [Concomitant]
     Active Substance: CYANOCOBALAMIN

REACTIONS (2)
  - Dyspnoea [None]
  - Chest pain [None]

NARRATIVE: CASE EVENT DATE: 201410
